FAERS Safety Report 4569012-1 (Version None)
Quarter: 2005Q1

REPORT INFORMATION
  Report Type: 
  Country: None (occurrence: None)
  Receive Date: 20050203
  Receipt Date: 20050125
  Transmission Date: 20050727
  Serious: Yes (Other)
  Sender: FDA-Public Use
  Company Number: 200510771GDDC

PATIENT
  Age: 26 Year
  Sex: Female
  Weight: 65 kg

DRUGS (5)
  1. LANTUS [Suspect]
     Indication: DIABETES MELLITUS INSULIN-DEPENDENT
     Dosage: DOSE UNIT: UNITS
     Route: 058
     Dates: start: 20050115, end: 20050121
  2. NOVORAPID [Concomitant]
     Dosage: DOSE: UNKNOWN DOSAGE
  3. ASPIRIN [Concomitant]
     Indication: PROPHYLAXIS
     Route: 048
     Dates: start: 20030101
  4. LOSARTAN [Concomitant]
     Route: 048
     Dates: start: 20030101
  5. SIMVASTATIN [Concomitant]
     Route: 048
     Dates: start: 20030101, end: 20041201

REACTIONS (3)
  - BLOOD GLUCOSE INCREASED [None]
  - INJECTION SITE REACTION [None]
  - PHARMACEUTICAL PRODUCT COMPLAINT [None]
